FAERS Safety Report 5866026-6 (Version None)
Quarter: 2008Q3

REPORT INFORMATION
  Report Type: 
  Country: None (occurrence: None)
  Receive Date: 20080829
  Receipt Date: 20080819
  Transmission Date: 20090109
  Serious: Yes (Other)
  Sender: FDA-Public Use
  Company Number: US-PFIZER INC-2008062626

PATIENT
  Age: 75 Year
  Sex: Female
  Weight: 91.6 kg

DRUGS (10)
  1. REVATIO [Suspect]
     Indication: PULMONARY ARTERIAL HYPERTENSION
     Route: 048
     Dates: start: 20080625, end: 20080714
  2. GLIBENCLAMIDE [Concomitant]
  3. ASPIRIN [Concomitant]
  4. ALLOPURINOL [Concomitant]
  5. LISINOPRIL [Concomitant]
  6. GLUCOPHAGE [Concomitant]
  7. PRILOSEC [Concomitant]
  8. GLYBURIDE [Concomitant]
  9. LOVASTATIN [Concomitant]
  10. ZINC [Concomitant]

REACTIONS (3)
  - CEREBRAL ATROPHY [None]
  - DEAFNESS [None]
  - LACUNAR INFARCTION [None]
